FAERS Safety Report 13752327 (Version 1)
Quarter: 2017Q3

REPORT INFORMATION
  Report Type: Spontaneous
  Country: US (occurrence: US)
  Receive Date: 20170713
  Receipt Date: 20170713
  Transmission Date: 20171127
  Serious: No
  Sender: FDA-Public Use
  Company Number: US-JAZZ-2017-US-006659

PATIENT
  Sex: Female

DRUGS (33)
  1. XYREM [Suspect]
     Active Substance: SODIUM OXYBATE
     Dosage: DOSE ADJUSTMENT
     Route: 048
     Dates: start: 201102, end: 201111
  2. FLUCONAZOLE. [Concomitant]
     Active Substance: FLUCONAZOLE
  3. VITAMIN D                          /00107901/ [Concomitant]
     Active Substance: ERGOCALCIFEROL
  4. ZINC ACETATE [Concomitant]
     Active Substance: ZINC ACETATE
  5. XYREM [Suspect]
     Active Substance: SODIUM OXYBATE
     Dosage: 4G, BID
     Route: 048
     Dates: start: 201111
  6. LEVOTHYROXINE. [Concomitant]
     Active Substance: LEVOTHYROXINE
  7. AUGMENTIN [Concomitant]
     Active Substance: AMOXICILLIN\CLAVULANATE POTASSIUM
  8. NASONEX [Concomitant]
     Active Substance: MOMETASONE FUROATE
  9. FLEXERIL [Concomitant]
     Active Substance: CYCLOBENZAPRINE HYDROCHLORIDE
  10. ARMOUR THYROID [Concomitant]
     Active Substance: THYROID, PORCINE
  11. CALCIUM + VITAMIN D                /01483701/ [Concomitant]
     Active Substance: CALCIUM\VITAMIN D
  12. IMITREX [Concomitant]
     Active Substance: SUMATRIPTAN SUCCINATE
  13. ALPHA LIPOIC ACID [Concomitant]
     Active Substance: .ALPHA.-LIPOIC ACID
  14. ZOFRAN [Concomitant]
     Active Substance: ONDANSETRON HYDROCHLORIDE
  15. XYREM [Suspect]
     Active Substance: SODIUM OXYBATE
     Indication: NARCOLEPSY
     Dosage: 2.25G, BID
     Route: 048
     Dates: start: 201101, end: 201102
  16. PHENYLALANINE, DL- [Concomitant]
     Active Substance: PHENYLALANINE, DL-
  17. FLONASE                            /00908302/ [Concomitant]
     Active Substance: MOMETASONE FUROATE
  18. GINKGO BILOBA [Concomitant]
     Active Substance: GINKGO
  19. POTASSIUM ACETATE. [Concomitant]
     Active Substance: POTASSIUM ACETATE
  20. CYTOMEL [Concomitant]
     Active Substance: LIOTHYRONINE SODIUM
  21. SULINDAC. [Concomitant]
     Active Substance: SULINDAC
  22. SYNTHROID [Concomitant]
     Active Substance: LEVOTHYROXINE SODIUM
  23. L-CARNITINE                        /00878601/ [Concomitant]
     Active Substance: LEVOCARNITINE
  24. MAGNESIUM CARBONAT [Concomitant]
  25. MILK THISTLE                       /01131701/ [Concomitant]
  26. PATANASE [Concomitant]
     Active Substance: OLOPATADINE HYDROCHLORIDE
  27. VITAMIN C [Concomitant]
     Active Substance: ASCORBIC ACID
  28. WELLBUTRIN [Concomitant]
     Active Substance: BUPROPION HYDROCHLORIDE
  29. DHEA [Concomitant]
     Active Substance: PRASTERONE
  30. FISH OIL CONCENTRATE [Concomitant]
     Active Substance: FISH OIL
  31. RESVERATROL [Concomitant]
     Active Substance: DIETARY SUPPLEMENT\RESVERATROL
  32. VITAMIN E                          /00110501/ [Concomitant]
     Active Substance: TOCOPHEROL
  33. ZANTAC [Concomitant]
     Active Substance: RANITIDINE HYDROCHLORIDE

REACTIONS (2)
  - Cough [Not Recovered/Not Resolved]
  - Seasonal allergy [Not Recovered/Not Resolved]
